FAERS Safety Report 14152739 (Version 1)
Quarter: 2017Q4

REPORT INFORMATION
  Report Type: Spontaneous
  Country: JP (occurrence: JP)
  Receive Date: 20171102
  Receipt Date: 20171102
  Transmission Date: 20180321
  Serious: Yes (Other)
  Sender: FDA-Public Use
  Company Number: JP-GLAXOSMITHKLINE-JP2017JPN166553

PATIENT
  Age: 40 Year
  Sex: Male

DRUGS (2)
  1. MALARONE [Suspect]
     Active Substance: ATOVAQUONE\PROGUANIL HYDROCHLORIDE
     Indication: PLASMODIUM FALCIPARUM INFECTION
     Dosage: UNK
     Route: 048
  2. QUININE HYDROCHLORIDE HYDRATE [Concomitant]
     Indication: PLASMODIUM FALCIPARUM INFECTION
     Dosage: UNK

REACTIONS (5)
  - Anaemia [Recovering/Resolving]
  - Altered state of consciousness [Recovering/Resolving]
  - Campylobacter gastroenteritis [Unknown]
  - Drug effect incomplete [Unknown]
  - Electrolyte imbalance [Recovering/Resolving]
